FAERS Safety Report 6527461-6 (Version None)
Quarter: 2010Q1

REPORT INFORMATION
  Report Type: 
  Country: None (occurrence: None)
  Receive Date: 20100105
  Receipt Date: 20091230
  Transmission Date: 20100710
  Serious: Yes (Hospitalization, Other)
  Sender: FDA-Public Use
  Company Number: US-WATSON-2009-11175

PATIENT
  Age: 7 Month
  Sex: Male

DRUGS (3)
  1. FLUOROURACIL [Suspect]
     Indication: HEPATOBLASTOMA
     Dosage: UNK
     Route: 065
  2. CISPLATIN [Suspect]
     Indication: HEPATOBLASTOMA
     Dosage: UNK
     Route: 065
  3. VINCRISTINE [Suspect]
     Indication: HEPATOBLASTOMA
     Dosage: UNK
     Route: 065

REACTIONS (1)
  - TUMOUR LYSIS SYNDROME [None]
